FAERS Safety Report 6111533-4 (Version None)
Quarter: 2009Q1

REPORT INFORMATION
  Report Type: 
  Country: None (occurrence: None)
  Receive Date: 20090311
  Receipt Date: 20090303
  Transmission Date: 20090719
  Serious: Yes (Hospitalization)
  Sender: FDA-Public Use
  Company Number: HR-ABBOTT-09P-216-0560112-00

PATIENT
  Sex: Male

DRUGS (9)
  1. ZEMPLAR [Suspect]
     Indication: DRUG USE FOR UNKNOWN INDICATION
     Dates: start: 20090201
  2. BISOPROLOL [Concomitant]
     Indication: DRUG USE FOR UNKNOWN INDICATION
  3. ISMN [Concomitant]
     Indication: DRUG USE FOR UNKNOWN INDICATION
     Dosage: 2X20MG=40MG
  4. LANZUL [Concomitant]
     Indication: DRUG USE FOR UNKNOWN INDICATION
  5. FURSEMID [Concomitant]
     Indication: DRUG USE FOR UNKNOWN INDICATION
     Dosage: 2X80=160MG
  6. CALCIUM CHLORIDE [Concomitant]
     Indication: DRUG USE FOR UNKNOWN INDICATION
  7. ASPIRIN [Concomitant]
     Indication: DRUG USE FOR UNKNOWN INDICATION
  8. VERFARIN [Concomitant]
     Indication: DRUG USE FOR UNKNOWN INDICATION
  9. HUMULIN R [Concomitant]
     Indication: DRUG USE FOR UNKNOWN INDICATION
     Dosage: 24 +10

REACTIONS (1)
  - ISCHAEMIC STROKE [None]
